FAERS Safety Report 13818523 (Version 2)
Quarter: 2017Q4

REPORT INFORMATION
  Report Type: Report from Study
  Country: US (occurrence: US)
  Receive Date: 20170731
  Receipt Date: 20171102
  Transmission Date: 20180320
  Serious: No
  Sender: FDA-Public Use
  Company Number: US-AMGEN-USASL2017088162

PATIENT
  Age: 70 Year
  Sex: Female

DRUGS (1)
  1. IMLYGIC [Suspect]
     Active Substance: TALIMOGENE LAHERPAREPVEC
     Indication: PLASMA CELL MYELOMA
     Dosage: UNK
     Route: 065

REACTIONS (2)
  - Nervousness [Unknown]
  - Balance disorder [Unknown]
